FAERS Safety Report 14459659 (Version 5)
Quarter: 2018Q3

REPORT INFORMATION
  Report Type: Spontaneous
  Country: JP (occurrence: JP)
  Receive Date: 20180130
  Receipt Date: 20180817
  Transmission Date: 20181010
  Serious: Yes (Life-Threatening, Hospitalization, Other)
  Sender: FDA-Public Use
  Company Number: JP-SA-2018SA022390

PATIENT
  Age: 17 Year
  Sex: Male

DRUGS (21)
  1. SULFAMETHOXAZOLE/TRIMETHOPRIM [Suspect]
     Active Substance: SULFAMETHOXAZOLE\TRIMETHOPRIM
     Indication: INFECTION
     Dosage: 2 G,BID
     Route: 065
     Dates: start: 20161005
  2. PITRESSIN [VASOPRESSIN] [Concomitant]
     Indication: DIABETES INSIPIDUS
     Dosage: UNK UNK,UNK
     Route: 065
     Dates: start: 20160902
  3. FOSPHENYTOIN SODIUM. [Suspect]
     Active Substance: FOSPHENYTOIN SODIUM
     Indication: CLONIC CONVULSION
     Dosage: UNK UNK,UNK
     Route: 065
     Dates: start: 20160902
  4. SODIUM VALPROATE [Suspect]
     Active Substance: VALPROATE SODIUM
     Dosage: 400 UNK
     Dates: start: 20160926
  5. LEVOFLOXACIN. [Suspect]
     Active Substance: LEVOFLOXACIN
     Indication: HYPERTHERMIA
     Dosage: 500 MG,QD
     Route: 065
     Dates: start: 20161005
  6. PREDNISOLONE. [Suspect]
     Active Substance: PREDNISOLONE
     Dosage: UNK
     Dates: start: 20161115, end: 20170205
  7. CEFAZOLIN SODIUM. [Suspect]
     Active Substance: CEFAZOLIN SODIUM
     Indication: URINARY TRACT INFECTION
     Dosage: 1 G,TID
     Route: 065
     Dates: start: 20160922
  8. CEFTAZIDIME. [Suspect]
     Active Substance: CEFTAZIDIME
     Indication: PSEUDOMONAS INFECTION
     Dosage: 1 G,TID
     Route: 065
     Dates: start: 20160926
  9. VANCOMYCIN [Suspect]
     Active Substance: VANCOMYCIN
     Dosage: 1.5 G,BID
     Route: 065
     Dates: start: 20161008, end: 20161019
  10. CEFEPIME HYDROCHLORIDE. [Concomitant]
     Active Substance: CEFEPIME HYDROCHLORIDE
     Indication: FEBRILE NEUTROPENIA
     Dosage: 1 G,BID
     Route: 065
     Dates: start: 20161019, end: 20161024
  11. MEROPENEM. [Suspect]
     Active Substance: MEROPENEM
     Indication: WOUND INFECTION
     Dosage: 2 G,TID
     Route: 041
     Dates: start: 20161008, end: 20161019
  12. CEFOTAXIME SODIUM [Suspect]
     Active Substance: CEFOTAXIME SODIUM
     Dosage: 1 G, QID
     Dates: start: 20160913
  13. CARBAMAZEPINE. [Suspect]
     Active Substance: CARBAMAZEPINE
     Dosage: 200 MG, BID
     Dates: start: 20160927, end: 20161019
  14. CEFTRIAXONE SODIUM. [Suspect]
     Active Substance: CEFTRIAXONE SODIUM
     Indication: INFECTION PROPHYLAXIS
     Dosage: 2 G,BID
     Route: 041
     Dates: start: 20160908, end: 20160913
  15. PREDNISOLONE. [Suspect]
     Active Substance: PREDNISOLONE
     Indication: HISTIOCYTOSIS HAEMATOPHAGIC
     Dosage: 1 MG/KG, QD
     Dates: start: 20161019, end: 201611
  16. PREDNISOLONE. [Suspect]
     Active Substance: PREDNISOLONE
     Dosage: DOSE ADJUSTED
     Dates: start: 20161109, end: 201611
  17. LINEZOLID. [Suspect]
     Active Substance: LINEZOLID
     Indication: INFECTION
     Dosage: 600 MG,QD
     Route: 065
  18. PREDNISOLONE. [Suspect]
     Active Substance: PREDNISOLONE
     Dosage: DOSE WAS DECREASE
     Dates: start: 20161102, end: 201611
  19. CEFOTAXIME SODIUM [Suspect]
     Active Substance: CEFOTAXIME SODIUM
     Indication: INFECTION PROPHYLAXIS
     Dosage: 1 G,QID
     Route: 065
     Dates: start: 20160902, end: 20160908
  20. SODIUM VALPROATE [Suspect]
     Active Substance: VALPROATE SODIUM
     Indication: SEIZURE
     Dosage: 200 MG, TID
     Route: 048
     Dates: start: 20160922, end: 20161019
  21. GLYCERIN [GLYCEROL] [Concomitant]
     Indication: INTRACRANIAL PRESSURE INCREASED
     Dosage: UNK UNK,UNK
     Route: 065

REACTIONS (14)
  - Histiocytosis haematophagic [Recovered/Resolved]
  - Splenomegaly [Recovered/Resolved]
  - Febrile neutropenia [Recovered/Resolved]
  - Serum ferritin increased [Recovered/Resolved]
  - Pancytopenia [Recovered/Resolved]
  - Hepatic function abnormal [Recovered/Resolved]
  - Lymphadenopathy [Recovered/Resolved]
  - Renal impairment [Recovered/Resolved]
  - Hyperthermia [Recovered/Resolved]
  - White blood cell count decreased [Recovered/Resolved]
  - Multiple organ dysfunction syndrome [Recovered/Resolved]
  - Blood lactate dehydrogenase increased [Recovered/Resolved]
  - Interleukin-2 receptor increased [Recovered/Resolved]
  - Rebound effect [Recovered/Resolved]

NARRATIVE: CASE EVENT DATE: 2016
